FAERS Safety Report 6603569-1 (Version None)
Quarter: 2010Q1

REPORT INFORMATION
  Report Type: 
  Country: None (occurrence: None)
  Receive Date: 20100226
  Receipt Date: 20091014
  Transmission Date: 20100710
  Serious: No
  Sender: FDA-Public Use
  Company Number: A0811795A

PATIENT
  Age: 5 Week

DRUGS (6)
  1. VALTREX [Suspect]
     Dosage: 500MG FOUR TIMES PER DAY
     Dates: start: 20090929
  2. VIROPTIC [Concomitant]
  3. VITAMIN TAB [Concomitant]
  4. FISH OIL [Concomitant]
  5. VITAMIN C [Concomitant]
  6. TYLENOL-500 [Concomitant]

REACTIONS (1)
  - DRUG EXPOSURE VIA BREAST MILK [None]
